FAERS Safety Report 5218285-0 (Version None)
Quarter: 2007Q1

REPORT INFORMATION
  Report Type: 
  Country: None (occurrence: None)
  Receive Date: 20070124
  Receipt Date: 20061109
  Transmission Date: 20070707
  Serious: Yes (Death, Life-Threatening)
  Sender: FDA-Public Use
  Company Number: US-PFIZER INC-2006140369

PATIENT
  Age: 35 Year

DRUGS (4)
  1. INSULIN HUMAN [Suspect]
     Route: 048
  2. CLONAZEPAM [Suspect]
     Dosage: TEXT:UNKNOWN
     Route: 048
     Dates: end: 20050101
  3. MORPHINE [Suspect]
     Dosage: TEXT:UNKNOWN
     Route: 048
  4. ALL OTHER THERAPEUTIC PRODUCTS [Suspect]
     Dosage: TEXT:UNKNOWN

REACTIONS (2)
  - CARDIO-RESPIRATORY ARREST [None]
  - COMPLETED SUICIDE [None]
